FAERS Safety Report 7205074-0 (Version None)
Quarter: 2010Q4

REPORT INFORMATION
  Report Type: 
  Country: None (occurrence: None)
  Receive Date: 20101230
  Receipt Date: 20101222
  Transmission Date: 20110411
  Serious: Yes (Other)
  Sender: FDA-Public Use
  Company Number: US-AMGEN-USASP2010001390

PATIENT

DRUGS (7)
  1. ENBREL [Suspect]
     Indication: JUVENILE ARTHRITIS
     Dosage: 25 MG, 2 TIMES/WK
     Route: 058
     Dates: start: 20100930
  2. METHOTREXATE [Concomitant]
     Dosage: 1 MG, QWK
  3. ZOFRAN [Concomitant]
     Dosage: 4 MG, ONE TIME DOSE
  4. FLEXERIL [Concomitant]
     Dosage: 10 MG, UNK
  5. FLONASE [Concomitant]
     Dosage: 16 MG, QD
     Route: 045
     Dates: end: 20100702
  6. INDERAL                            /00030001/ [Concomitant]
  7. FOLIC ACID [Concomitant]

REACTIONS (15)
  - ADVERSE DRUG REACTION [None]
  - DYSPNOEA [None]
  - EPISTAXIS [None]
  - HEADACHE [None]
  - INJECTION SITE ERYTHEMA [None]
  - INJECTION SITE REACTION [None]
  - INJECTION SITE SWELLING [None]
  - NAUSEA [None]
  - PAIN [None]
  - PALPITATIONS [None]
  - PHOTOSENSITIVITY REACTION [None]
  - RASH MACULAR [None]
  - SINUS TACHYCARDIA [None]
  - SKIN PLAQUE [None]
  - VOMITING [None]
